FAERS Safety Report 7163688-0 (Version None)
Quarter: 2010Q4

REPORT INFORMATION
  Report Type: 
  Country: None (occurrence: None)
  Receive Date: 20101215
  Receipt Date: 20100527
  Transmission Date: 20110411
  Serious: Yes (Other)
  Sender: FDA-Public Use
  Company Number: FR-PFIZER INC-2010059466

PATIENT
  Age: 34 Year
  Sex: Female
  Weight: 80 kg

DRUGS (3)
  1. LYRICA [Suspect]
     Indication: ARTHRALGIA
     Dosage: 75 MG, 1X/DAY
     Dates: start: 20100301
  2. LYRICA [Suspect]
     Dosage: 75 MG, 2X/DAY
     Dates: start: 20100507
  3. ESCITALOPRAM [Concomitant]
     Indication: DEPRESSION
     Dosage: 10 MG, 1X/DAY
     Route: 048
     Dates: start: 20091001

REACTIONS (7)
  - COORDINATION ABNORMAL [None]
  - DISINHIBITION [None]
  - MALAISE [None]
  - MUSCLE DISORDER [None]
  - SOMNOLENCE [None]
  - SPEECH DISORDER [None]
  - VERTIGO [None]
